FAERS Safety Report 24269005 (Version 1)
Quarter: 2024Q3

REPORT INFORMATION
  Report Type: Report from Study
  Country: CN (occurrence: CN)
  Receive Date: 20240830
  Receipt Date: 20240830
  Transmission Date: 20241016
  Serious: Yes (Death, Other)
  Sender: ROCHE
  Company Number: CN-ROCHE-3577981

PATIENT
  Age: 77 Year
  Sex: Female

DRUGS (6)
  1. POLATUZUMAB VEDOTIN [Suspect]
     Active Substance: POLATUZUMAB VEDOTIN
     Indication: Diffuse large B-cell lymphoma
     Dosage: FREQUENCY TEXT:ONCE
     Route: 041
     Dates: start: 20231222
  2. RITUXIMAB [Suspect]
     Active Substance: RITUXIMAB
     Indication: Diffuse large B-cell lymphoma
     Route: 065
  3. LENALIDOMIDE [Suspect]
     Active Substance: LENALIDOMIDE
     Indication: Diffuse large B-cell lymphoma
     Route: 065
  4. ZANUBRUTINIB [Suspect]
     Active Substance: ZANUBRUTINIB
     Indication: Diffuse large B-cell lymphoma
     Route: 065
  5. POTASSIUM CHLORIDE [Concomitant]
     Active Substance: POTASSIUM CHLORIDE
     Dates: start: 20240322
  6. RECOMBINANT HUMAN THROMBOPOIETIN [Concomitant]
     Active Substance: RECOMBINANT HUMAN THROMBOPOIETIN
     Dates: start: 20240325

REACTIONS (5)
  - White blood cell count decreased [Not Recovered/Not Resolved]
  - Sinus arrhythmia [Not Recovered/Not Resolved]
  - Lymphocyte count decreased [Recovered/Resolved]
  - Supraventricular extrasystoles [Not Recovered/Not Resolved]
  - Shock haemorrhagic [Fatal]

NARRATIVE: CASE EVENT DATE: 20240119
